FAERS Safety Report 6983611-9 (Version None)
Quarter: 2010Q3

REPORT INFORMATION
  Report Type: 
  Country: None (occurrence: None)
  Receive Date: 20100914
  Receipt Date: 20081008
  Transmission Date: 20110219
  Serious: No
  Sender: FDA-Public Use
  Company Number: US-WYE-H05788008

PATIENT
  Age: 75 Year
  Sex: Female
  Weight: 52.21 kg

DRUGS (2)
  1. ADVIL LIQUI-GELS [Suspect]
     Indication: PAIN
     Dosage: 1 TABLET AT UNKNOWN FREQUENCY
     Route: 048
     Dates: start: 20080825, end: 20080825
  2. IBUPROFEN [Suspect]

REACTIONS (2)
  - CHOKING [None]
  - DRUG INEFFECTIVE [None]
